FAERS Safety Report 4572611-4 (Version None)
Quarter: 2005Q1

REPORT INFORMATION
  Report Type: 
  Country: None (occurrence: None)
  Receive Date: 20050208
  Receipt Date: 20050125
  Transmission Date: 20050727
  Serious: Yes (Hospitalization)
  Sender: FDA-Public Use
  Company Number: US-SOLVAY-00205000269

PATIENT
  Age: 31469 Day
  Sex: Male

DRUGS (4)
  1. LIPITOR [Concomitant]
     Indication: HYPERLIPIDAEMIA
     Dosage: DAILY DOSE: 10 MILLIGRAM(S)
     Route: 048
  2. ANDROGEL [Suspect]
     Indication: HYPOGONADISM
     Dosage: DAILY DOSE: 5 GRAM(S)
     Route: 062
     Dates: start: 20041026, end: 20050121
  3. PLAVIX [Concomitant]
     Indication: PLATELET AGGREGATION INHIBITION
     Dosage: DAILY DOSE: 75 MILLIGRAM(S)
     Route: 048
  4. BEXTRA [Concomitant]
     Indication: OSTEOARTHRITIS
     Dosage: DAILY DOSE: 10 MILLIGRAM(S)
     Route: 048

REACTIONS (3)
  - FALL [None]
  - LIMB INJURY [None]
  - UPPER LIMB FRACTURE [None]
